FAERS Safety Report 24043796 (Version 1)
Quarter: 2024Q3

REPORT INFORMATION
  Report Type: Report from Study
  Country: BR (occurrence: BR)
  Receive Date: 20240703
  Receipt Date: 20240703
  Transmission Date: 20241017
  Serious: Yes (Other)
  Sender: JOHNSON AND JOHNSON
  Company Number: BR-JNJFOC-20240676436

PATIENT
  Age: 59 Year
  Sex: Female
  Weight: 42 kg

DRUGS (1)
  1. INFLIXIMAB [Suspect]
     Active Substance: INFLIXIMAB
     Indication: Colitis ulcerative
     Route: 041
     Dates: start: 20220427

REACTIONS (4)
  - Ovarian cancer [Unknown]
  - Pancreatic cyst [Unknown]
  - Renal cyst [Unknown]
  - Hepatic cyst [Unknown]
